FAERS Safety Report 7626744-6 (Version None)
Quarter: 2011Q3

REPORT INFORMATION
  Report Type: 
  Country: None (occurrence: None)
  Receive Date: 20110721
  Receipt Date: 20110708
  Transmission Date: 20111222
  Serious: Yes (Hospitalization)
  Sender: FDA-Public Use
  Company Number: US-ELI_LILLY_AND_COMPANY-US201107002803

PATIENT
  Sex: Female

DRUGS (1)
  1. ZYPREXA RELPREVV [Suspect]
     Indication: SCHIZOPHRENIA
     Dosage: 405 MG, EVERY MONTH

REACTIONS (4)
  - AGITATION [None]
  - AKATHISIA [None]
  - DELUSIONAL DISORDER, UNSPECIFIED TYPE [None]
  - HOSPITALISATION [None]
